FAERS Safety Report 15686708 (Version 1)
Quarter: 2018Q4

REPORT INFORMATION
  Report Type: Report from Study
  Country: JP (occurrence: JP)
  Receive Date: 20181204
  Receipt Date: 20181204
  Transmission Date: 20190205
  Serious: Yes (Hospitalization)
  Sender: FDA-Public Use
  Company Number: JP-VIFOR (INTERNATIONAL) INC.-VIT-2018-12021

PATIENT
  Age: 87 Year
  Sex: Male
  Weight: 54.6 kg

DRUGS (8)
  1. VELPHORO [Suspect]
     Active Substance: FERRIC OXYHYDROXIDE
     Indication: HYPERPHOSPHATAEMIA
     Route: 048
     Dates: start: 20180928
  2. ONEALFA [Concomitant]
     Active Substance: ALFACALCIDOL
     Route: 048
  3. NESP [Concomitant]
     Active Substance: DARBEPOETIN ALFA
     Dates: start: 20170130, end: 20170828
  4. NESP [Concomitant]
     Active Substance: DARBEPOETIN ALFA
     Dates: end: 20161226
  5. PRECIPITATED CALCIUM CARBONATE [Concomitant]
     Active Substance: CALCIUM CARBONATE
     Indication: HYPERPHOSPHATAEMIA
     Route: 048
     Dates: end: 20161118
  6. NESP [Concomitant]
     Active Substance: DARBEPOETIN ALFA
     Dates: start: 20161226, end: 20170130
  7. BAYSPIRIN [Concomitant]
     Indication: PROPHYLAXIS
     Route: 048
  8. NESP [Concomitant]
     Active Substance: DARBEPOETIN ALFA
     Dates: start: 20170828

REACTIONS (2)
  - Shunt occlusion [Recovered/Resolved]
  - C-reactive protein increased [Recovered/Resolved]

NARRATIVE: CASE EVENT DATE: 20170703
